FAERS Safety Report 8835023 (Version 1)
Quarter: 2012Q4

REPORT INFORMATION
  Report Type: 
  Country: US (occurrence: US)
  Receive Date: 20121011
  Receipt Date: 20121011
  Transmission Date: 20130627
  Serious: No
  Sender: FDA-Public Use
  Company Number: US-009507513-1209USA008817

PATIENT
  Sex: Male

DRUGS (6)
  1. PEGINTRON [Suspect]
     Indication: HEPATITIS C
     Dosage: UNK
     Route: 058
     Dates: start: 20120217, end: 20120217
  2. PEGINTRON [Suspect]
     Dosage: UNK
     Route: 058
     Dates: start: 20120604, end: 20120912
  3. REBETOL [Suspect]
     Indication: HEPATITIS C
     Dosage: UNK
     Route: 048
     Dates: start: 20120217, end: 20120217
  4. REBETOL [Suspect]
     Dosage: 400 mg, tid
     Route: 048
     Dates: start: 20120604, end: 20120912
  5. VICTRELIS [Suspect]
     Indication: HEPATITIS C
     Dosage: UNK
     Route: 048
     Dates: start: 20120217, end: 20120217
  6. VICTRELIS [Suspect]
     Dosage: UNK
     Route: 048
     Dates: start: 20120705, end: 20120912

REACTIONS (11)
  - Memory impairment [Unknown]
  - Underdose [Unknown]
  - Memory impairment [Unknown]
  - Pain [Unknown]
  - Feeling abnormal [Unknown]
  - Irritability [Unknown]
  - Fatigue [Unknown]
  - Asthenia [Unknown]
  - Headache [Unknown]
  - Rash [Unknown]
  - No therapeutic response [Unknown]
